FAERS Safety Report 4383425-2 (Version None)
Quarter: 2004Q2

REPORT INFORMATION
  Report Type: 
  Country: None (occurrence: None)
  Receive Date: 20040618
  Receipt Date: 20040603
  Transmission Date: 20050107
  Serious: Yes (Hospitalization)
  Sender: FDA-Public Use
  Company Number: 200411871GDS

PATIENT
  Age: 5 Year
  Sex: Female
  Weight: 17 kg

DRUGS (2)
  1. ADALAT CC [Suspect]
     Indication: HYPERTENSION
     Dosage: 17 MG, TOTAL DAILY, ORAL
     Route: 048
     Dates: start: 20011003, end: 20011009
  2. DOXAZOSIN [Suspect]
     Indication: HYPERTENSION
     Dosage: 1190 UG, TOTAL DAILY

REACTIONS (1)
  - ATRIOVENTRICULAR BLOCK SECOND DEGREE [None]
